FAERS Safety Report 4910480-0 (Version None)
Quarter: 2006Q1

REPORT INFORMATION
  Report Type: 
  Country: None (occurrence: None)
  Receive Date: 20060209
  Receipt Date: 20060203
  Transmission Date: 20060701
  Serious: Yes (Hospitalization)
  Sender: FDA-Public Use
  Company Number: 200610399GDS

PATIENT
  Sex: Male

DRUGS (4)
  1. ACTIMAX (MOXIFLOXACIN) [Suspect]
     Indication: BRONCHITIS
     Dosage: 400 MG, ONCE , ORAL
     Route: 048
  2. COAPROVEL [Concomitant]
  3. NORVASC [Concomitant]
  4. ASPIRIN [Concomitant]

REACTIONS (2)
  - CONFUSIONAL STATE [None]
  - DELIRIUM [None]
